FAERS Safety Report 11563717 (Version 1)
Quarter: 2015Q3

REPORT INFORMATION
  Report Type: Spontaneous
  Country: US (occurrence: US)
  Receive Date: 20150916
  Receipt Date: 20150916
  Transmission Date: 20151125
  Serious: No
  Sender: FDA-Public Use
  Company Number: US-ELI_LILLY_AND_COMPANY-US200902002492

PATIENT
  Sex: Female

DRUGS (3)
  1. PRILOSEC [Concomitant]
     Active Substance: OMEPRAZOLE MAGNESIUM
  2. FORTEO [Suspect]
     Active Substance: TERIPARATIDE
     Dates: start: 20090204
  3. NARDIL [Concomitant]
     Active Substance: PHENELZINE SULFATE

REACTIONS (5)
  - Hot flush [Unknown]
  - Dizziness [Not Recovered/Not Resolved]
  - Dyspepsia [Unknown]
  - Headache [Recovered/Resolved]
  - Nausea [Not Recovered/Not Resolved]

NARRATIVE: CASE EVENT DATE: 200902
